FAERS Safety Report 15547026 (Version 1)
Quarter: 2018Q4

REPORT INFORMATION
  Report Type: Spontaneous
  Country: US (occurrence: US)
  Receive Date: 20181024
  Receipt Date: 20181024
  Transmission Date: 20190205
  Serious: Yes (Other)
  Sender: FDA-Public Use
  Company Number: None

PATIENT
  Age: 38 Year
  Sex: Female

DRUGS (10)
  1. CLONAZEPAM TAB 2MG [Concomitant]
  2. SERTRALINE TAB 100MG [Concomitant]
  3. MUPIROCIN OINT 2% [Concomitant]
  4. TRAZODONE TAB 100MG [Concomitant]
  5. FANAPT TAB 6MG [Concomitant]
  6. TRAZODONE [Concomitant]
     Active Substance: TRAZODONE HYDROCHLORIDE
  7. HYDROXYZ PAM CAP 50MG [Concomitant]
  8. DIAZEPAM TAB 10MG [Concomitant]
  9. INVEGA SUSTENNA [Suspect]
     Active Substance: PALIPERIDONE PALMITATE
     Indication: SCHIZOPHRENIA
     Dosage: ?          OTHER FREQUENCY:EVERY MONTH;?
     Route: 030
  10. PALIPERIDONE TAB ER 3MG [Concomitant]

REACTIONS (2)
  - Therapy cessation [None]
  - Suicidal ideation [None]

NARRATIVE: CASE EVENT DATE: 20181022
